FAERS Safety Report 6383212-X (Version None)
Quarter: 2009Q3

REPORT INFORMATION
  Report Type: 
  Country: None (occurrence: None)
  Receive Date: 20090929
  Receipt Date: 20090914
  Transmission Date: 20100115
  Serious: Yes (Death)
  Sender: FDA-Public Use
  Company Number: 2008AL011094

PATIENT
  Age: 69 Year
  Sex: Female

DRUGS (23)
  1. DIGOXIN [Suspect]
     Dosage: 0.25 MG, PO; 0.125MG, PO
     Route: 048
     Dates: start: 20061101
  2. ATROVENT [Concomitant]
  3. PROVENTIL-HFA [Concomitant]
  4. LEVAQUIN [Concomitant]
  5. PREDNISONE [Concomitant]
  6. NAPROXEN [Concomitant]
  7. PROPOXYPHENE-N [Concomitant]
  8. RANITIDINE [Concomitant]
  9. CHLORDIAZEPOXIDE [Concomitant]
  10. LISINOPRIL [Concomitant]
  11. PLAVIX [Concomitant]
  12. XOPENEX [Concomitant]
  13. ASPIRIN [Concomitant]
  14. PROTONIX [Concomitant]
  15. FUROSEMIDE [Concomitant]
  16. KLOR-CON [Concomitant]
  17. METOPROLOL [Concomitant]
  18. ACETAMINOPHEN AND HYDROCODONE BITARTRATE [Concomitant]
  19. ALPRAZOLAM [Concomitant]
  20. CIPRO [Concomitant]
  21. ALBUTEROL [Concomitant]
  22. AMOXICILLIN [Concomitant]
  23. IPRATROPIUM [Concomitant]

REACTIONS (5)
  - ANGINA PECTORIS [None]
  - CARDIAC FAILURE CONGESTIVE [None]
  - DECREASED ACTIVITY [None]
  - ECONOMIC PROBLEM [None]
  - INJURY [None]
